FAERS Safety Report 5813639-3 (Version None)
Quarter: 2008Q3

REPORT INFORMATION
  Report Type: 
  Country: None (occurrence: None)
  Receive Date: 20080717
  Receipt Date: 20080709
  Transmission Date: 20090109
  Serious: Yes (Hospitalization, Congenital Anomaly)
  Sender: FDA-Public Use
  Company Number: A0683102A

PATIENT
  Sex: Female
  Weight: 2.5 kg

DRUGS (3)
  1. PAXIL [Suspect]
     Indication: DRUG USE FOR UNKNOWN INDICATION
  2. ALBUTEROL [Concomitant]
  3. SYNTHROID [Concomitant]

REACTIONS (6)
  - CEREBRAL VENTRICLE DILATATION [None]
  - CONGENITAL CEREBELLAR AGENESIS [None]
  - DEVELOPMENTAL DELAY [None]
  - DRUG EXPOSURE DURING PREGNANCY [None]
  - HOLOPROSENCEPHALY [None]
  - VENTRICULAR SEPTAL DEFECT [None]
